FAERS Safety Report 4817061-8 (Version None)
Quarter: 2005Q4

REPORT INFORMATION
  Report Type: 
  Country: None (occurrence: None)
  Receive Date: 20051101
  Receipt Date: 20051020
  Transmission Date: 20060501
  Serious: Yes (Other)
  Sender: FDA-Public Use
  Company Number: PHNR2005AU01542

PATIENT
  Sex: Female

DRUGS (1)
  1. FEMARA [Suspect]
     Indication: BREAST CANCER
     Dosage: 2.5 MG
     Dates: start: 20050701, end: 20050901

REACTIONS (4)
  - HYPOTENSION [None]
  - MIGRAINE [None]
  - NAUSEA [None]
  - SENSORY DISTURBANCE [None]
